FAERS Safety Report 7762325-1 (Version None)
Quarter: 2011Q3

REPORT INFORMATION
  Report Type: 
  Country: None (occurrence: None)
  Receive Date: 20110919
  Receipt Date: 20110919
  Transmission Date: 20111222
  Serious: Yes (Hospitalization)
  Sender: FDA-Public Use
  Company Number: None

PATIENT
  Sex: Female
  Weight: 44.4 kg

DRUGS (7)
  1. METOPROLOL SUCCINATE [Concomitant]
  2. BENICAR [Concomitant]
  3. TOPOTECAN [Suspect]
     Dosage: 3.3 MG
     Dates: start: 20110906, end: 20110908
  4. GLIMEPIRIDE [Concomitant]
  5. TAXOL [Suspect]
     Dosage: 250 MG
     Dates: start: 20110906, end: 20110906
  6. SIMVASTATIN [Concomitant]
  7. JANUVIA [Concomitant]

REACTIONS (4)
  - ANAEMIA [None]
  - URINARY TRACT INFECTION [None]
  - FEBRILE NEUTROPENIA [None]
  - CHILLS [None]
